FAERS Safety Report 6672731-4 (Version None)
Quarter: 2010Q2

REPORT INFORMATION
  Report Type: 
  Country: None (occurrence: None)
  Receive Date: 20100408
  Receipt Date: 20100330
  Transmission Date: 20101027
  Serious: Yes (Hospitalization, Other)
  Sender: FDA-Public Use
  Company Number: US-ROCHE-695401

PATIENT
  Sex: Female
  Weight: 68.9 kg

DRUGS (10)
  1. CLONAZEPAM [Suspect]
     Indication: DRUG USE FOR UNKNOWN INDICATION
     Route: 065
     Dates: end: 20100101
  2. CHANTIX [Suspect]
     Dosage: FORM: FILM COATED TABLET.
     Route: 065
     Dates: start: 20080101
  3. CHANTIX [Suspect]
     Route: 065
  4. CHANTIX [Suspect]
     Route: 065
     Dates: start: 20100223
  5. ABILIFY [Concomitant]
     Dosage: START DATE: 2010.
  6. LEVOTHYROXINE SODIUM [Concomitant]
  7. FERROUS SULFATE TAB [Concomitant]
  8. LEXAPRO [Concomitant]
     Dosage: STOP DATE: 2010.
  9. FLEXERIL [Concomitant]
  10. CLARITIN [Concomitant]

REACTIONS (9)
  - DEPRESSION [None]
  - FEELING JITTERY [None]
  - MALAISE [None]
  - NERVOUSNESS [None]
  - OVERDOSE [None]
  - PANIC ATTACK [None]
  - SOMNOLENCE [None]
  - SUICIDE ATTEMPT [None]
  - VOMITING [None]
